FAERS Safety Report 4531438-X (Version None)
Quarter: 2004Q4

REPORT INFORMATION
  Report Type: 
  Country: None (occurrence: None)
  Receive Date: 20041217
  Receipt Date: 20041217
  Transmission Date: 20050328
  Serious: Yes (Hospitalization)
  Sender: FDA-Public Use
  Company Number: None

PATIENT
  Age: 51 Year
  Sex: Female

DRUGS (11)
  1. CAPECITABINE [Suspect]
     Indication: COLORECTAL CANCER METASTATIC
     Dosage: 640 MG/M2 BID PO
     Route: 048
     Dates: start: 20040412, end: 20041211
  2. PHENERGAN [Concomitant]
  3. AMBIEN [Concomitant]
  4. REGLAN [Concomitant]
  5. IRON SULFATETHIAMIN COMPOUND TAB [Concomitant]
  6. PROZAC [Concomitant]
  7. NEXIUM [Concomitant]
  8. XANAX [Concomitant]
  9. TRAZODONE HCL [Concomitant]
  10. TOPAMAX [Concomitant]
  11. VICODEN [Concomitant]

REACTIONS (7)
  - ABDOMINAL DISCOMFORT [None]
  - DYSAESTHESIA [None]
  - ILEUS [None]
  - INFECTION [None]
  - INTESTINAL OBSTRUCTION [None]
  - NEUROPATHY [None]
  - PALMAR-PLANTAR ERYTHRODYSAESTHESIA SYNDROME [None]
